FAERS Safety Report 6957973-2 (Version None)
Quarter: 2010Q3

REPORT INFORMATION
  Report Type: 
  Country: None (occurrence: None)
  Receive Date: 20100831
  Receipt Date: 20100824
  Transmission Date: 20110219
  Serious: Yes (Hospitalization)
  Sender: FDA-Public Use
  Company Number: US-KINGPHARMUSA00001-K201001080

PATIENT
  Sex: Male

DRUGS (6)
  1. THROMBIN-JMI [Suspect]
     Indication: OPERATIVE HAEMORRHAGE
     Dosage: UNK
     Route: 061
     Dates: start: 20100701, end: 20100701
  2. ANESTHETICS, LOCAL [Concomitant]
     Indication: LOCAL ANAESTHESIA
     Dosage: UNK, FEMORAL NERVE AND SPINAL BLOCK
     Dates: start: 20100701, end: 20100701
  3. ROPIVACAINE [Concomitant]
     Dosage: UNK
     Route: 014
     Dates: start: 20100701, end: 20100701
  4. EPINEPHRINE [Concomitant]
     Dosage: UNK
     Route: 014
     Dates: start: 20100701, end: 20100701
  5. TORADOL [Concomitant]
     Dosage: UNK
     Route: 014
     Dates: start: 20100701, end: 20100701
  6. ASPIRIN [Concomitant]
     Dosage: UNK

REACTIONS (2)
  - POST PROCEDURAL HAEMATOMA [None]
  - POST PROCEDURAL HAEMORRHAGE [None]
